FAERS Safety Report 6199792-3 (Version None)
Quarter: 2009Q2

REPORT INFORMATION
  Report Type: 
  Country: None (occurrence: None)
  Receive Date: 20090522
  Receipt Date: 20090513
  Transmission Date: 20091009
  Serious: Yes (Other)
  Sender: FDA-Public Use
  Company Number: DE-ELI_LILLY_AND_COMPANY-DE200905002437

PATIENT
  Sex: Female

DRUGS (3)
  1. STRATTERA [Suspect]
     Indication: ATTENTION DEFICIT/HYPERACTIVITY DISORDER
     Dosage: 25 MG, UNKNOWN
     Route: 048
     Dates: start: 20090421
  2. GABAPENTIN [Concomitant]
     Indication: ADJUSTMENT DISORDER
     Dosage: UNK, UNKNOWN (2400 UNKNOWN UNITS)
     Route: 048
     Dates: start: 20090331
  3. MIRTAZAPINE [Concomitant]
     Indication: POST-TRAUMATIC STRESS DISORDER
     Dosage: UNK, UNKNOWN (45 UNKNOWN UNITS)
     Route: 048
     Dates: start: 20090331

REACTIONS (3)
  - ALANINE AMINOTRANSFERASE INCREASED [None]
  - ASPARTATE AMINOTRANSFERASE INCREASED [None]
  - GAMMA-GLUTAMYLTRANSFERASE INCREASED [None]
